FAERS Safety Report 6155633-1 (Version None)
Quarter: 2009Q2

REPORT INFORMATION
  Report Type: 
  Country: None (occurrence: None)
  Receive Date: 20090415
  Receipt Date: 20090408
  Transmission Date: 20091009
  Serious: Yes (Life-Threatening, Hospitalization)
  Sender: FDA-Public Use
  Company Number: FR-WYE-G03475809

PATIENT
  Sex: Male

DRUGS (6)
  1. EFFEXOR [Suspect]
     Dosage: OVERDOSE AMOUNT WAS UNKNOWN
     Route: 048
     Dates: start: 20080929, end: 20080929
  2. ALCOHOL [Suspect]
     Dosage: OVERDOSE AMOUNT WAS UNKNOWN
     Route: 048
     Dates: start: 20080929, end: 20080929
  3. EQUANIL [Suspect]
     Dosage: OVERDOSE AMOUNT WAS UNKNOWN
     Route: 048
     Dates: start: 20080929, end: 20080929
  4. ACETAMINOPHEN AND CODEINE PHOSPHATE [Suspect]
     Dosage: OVERDOSE AMOUNT WAS UNKNOWN
     Route: 048
     Dates: start: 20080929, end: 20080929
  5. SERESTA [Suspect]
     Dosage: OVERDOSE AMOUNT WAS UNKNOWN
     Route: 048
     Dates: start: 20080929, end: 20080929
  6. AOTAL [Suspect]
     Dosage: OVERDOSE AMOUNT WAS UNKNOWN
     Route: 048
     Dates: start: 20080929, end: 20080929

REACTIONS (4)
  - CARDIO-RESPIRATORY ARREST [None]
  - CONFUSIONAL STATE [None]
  - MULTIPLE DRUG OVERDOSE INTENTIONAL [None]
  - SUICIDAL IDEATION [None]
